FAERS Safety Report 6409740-6 (Version None)
Quarter: 2009Q4

REPORT INFORMATION
  Report Type: 
  Country: None (occurrence: None)
  Receive Date: 20091022
  Receipt Date: 20091009
  Transmission Date: 20100525
  Serious: Yes (Other)
  Sender: FDA-Public Use
  Company Number: PHHY2009BR43761

PATIENT
  Sex: Female

DRUGS (2)
  1. TEGRETOL-XR [Suspect]
     Dosage: 200 MG, UNK
  2. TEGRETOL [Suspect]
     Dosage: 200 MG, UNK

REACTIONS (2)
  - CONVULSION [None]
  - NAUSEA [None]
